FAERS Safety Report 7856755 (Version 3)
Quarter: 2012Q4

REPORT INFORMATION
  Report Type: 
  Country: GB (occurrence: GB)
  Receive Date: 20110315
  Receipt Date: 20120918
  Transmission Date: 20130627
  Serious: Yes (Other)
  Sender: FDA-Public Use
  Company Number: GB-GILEAD-2011-0037354

PATIENT
  Sex: Female

DRUGS (5)
  1. TENOFOVIR DISOPROXIL FUMARATE [Suspect]
     Indication: HIV INFECTION
     Route: 064
     Dates: end: 20110114
  2. EPZICOM [Concomitant]
     Route: 064
  3. REYATAZ [Concomitant]
     Route: 064
     Dates: end: 20110114
  4. NORVIR [Concomitant]
     Route: 064
  5. ISENTRESS [Concomitant]
     Route: 064

REACTIONS (2)
  - Small for dates baby [Recovered/Resolved]
  - Placental insufficiency [Unknown]
